FAERS Safety Report 9831761 (Version 2)
Quarter: 2014Q1

REPORT INFORMATION
  Report Type: Spontaneous
  Country: US (occurrence: US)
  Receive Date: 20140121
  Receipt Date: 20140128
  Transmission Date: 20141002
  Serious: No
  Sender: FDA-Public Use
  Company Number: US-PFIZER INC-2014012987

PATIENT
  Sex: Male

DRUGS (2)
  1. TOVIAZ [Suspect]
     Dosage: 8 MG, UNK
  2. TOVIAZ [Suspect]
     Dosage: 4 MG, UNK

REACTIONS (2)
  - Pain [Unknown]
  - Intentional drug misuse [Unknown]
